FAERS Safety Report 6469505-6 (Version None)
Quarter: 2009Q4

REPORT INFORMATION
  Report Type: 
  Country: None (occurrence: None)
  Receive Date: 20091203
  Receipt Date: 20071226
  Transmission Date: 20100525
  Serious: Yes (Hospitalization)
  Sender: FDA-Public Use
  Company Number: FR-ELI_LILLY_AND_COMPANY-FR200705000336

PATIENT
  Age: 72 Year
  Sex: Female

DRUGS (2)
  1. FORTEO [Suspect]
     Indication: OSTEOPOROSIS
     Dosage: 20 UG, DAILY (1/D)
     Route: 058
     Dates: start: 20060505, end: 20070401
  2. LAMALINE [Concomitant]
     Indication: BONE PAIN
     Dosage: 4 D/F, DAILY (1/D)
     Route: 048
     Dates: start: 20060505

REACTIONS (1)
  - BREAST CANCER [None]
